FAERS Safety Report 15113267 (Version 1)
Quarter: 2018Q3

REPORT INFORMATION
  Report Type: Report from Study
  Country: IT (occurrence: IT)
  Receive Date: 20180706
  Receipt Date: 20180706
  Transmission Date: 20181010
  Serious: Yes (Other)
  Sender: FDA-Public Use
  Company Number: IT-TEVA-2018-IT-921556

PATIENT
  Age: 5 Year
  Sex: Female
  Weight: 16 kg

DRUGS (2)
  1. AMOXICILLINA/ACIDO CLAVULANICO [Suspect]
     Active Substance: AMOXICILLIN\CLAVULANIC ACID
     Indication: TONSILLITIS
     Route: 048
     Dates: start: 20180329, end: 20180329
  2. AUGMENTIN BAMBINI 400 MG/57 MG/5 ML POLVERE PER SOSPENSIONE ORALE [Concomitant]
     Indication: TONSILLITIS
     Route: 048
     Dates: start: 20180322, end: 20180328

REACTIONS (2)
  - Erythema [Recovering/Resolving]
  - Lip oedema [Recovering/Resolving]

NARRATIVE: CASE EVENT DATE: 20180329
